FAERS Safety Report 8024479-1 (Version None)
Quarter: 2012Q1

REPORT INFORMATION
  Report Type: 
  Country: None (occurrence: None)
  Receive Date: 20120105
  Receipt Date: 20111226
  Transmission Date: 20120608
  Serious: Yes (Other)
  Sender: FDA-Public Use
  Company Number: KR-AMGEN-KORSP2011026147

PATIENT
  Age: 67 Year
  Sex: Male

DRUGS (14)
  1. EPOETIN ALFA [Suspect]
     Indication: PRODUCT USED FOR UNKNOWN INDICATION
     Dosage: UNK
     Dates: start: 20090205, end: 20110406
  2. ASPIRIN [Concomitant]
  3. GLICLAZIDE [Concomitant]
     Dosage: 30 MG, UNK
  4. PROPRANOLOL [Concomitant]
     Dosage: 40 MG, UNK
  5. REPAGLINIDE [Concomitant]
     Dosage: 1 MG, UNK
  6. NESPO [Suspect]
     Indication: PRODUCT USED FOR UNKNOWN INDICATION
     Dosage: UNK
     Route: 058
     Dates: start: 20090307, end: 20091010
  7. VITAMIN B COMPLEX WITH C [Concomitant]
  8. NIFEDIPINE [Concomitant]
     Dosage: 60 MG, UNK
  9. FERROUS SULFATE TAB [Concomitant]
  10. CANDESARTAN CILEXETIL [Concomitant]
     Dosage: 16 MG, UNK
  11. HYDRALAZINE HCL [Concomitant]
     Dosage: 25 MG, UNK
  12. CALCIUM POLYSTYRENE SULFONATE [Concomitant]
     Dosage: 5 G, TID
  13. SEVELAMER HYDROCHLORIDE [Concomitant]
     Dosage: 800 MG, UNK
  14. NESPO [Suspect]
     Dosage: UNK
     Dates: start: 20090205

REACTIONS (2)
  - APLASIA PURE RED CELL [None]
  - ANTI-ERYTHROPOIETIN ANTIBODY POSITIVE [None]
